FAERS Safety Report 13634282 (Version 1)
Quarter: 2017Q2

REPORT INFORMATION
  Report Type: Spontaneous
  Country: US (occurrence: US)
  Receive Date: 20170531
  Receipt Date: 20170531
  Transmission Date: 20170830
  Serious: No
  Sender: FDA-Public Use
  Company Number: US-ASTELLAS-1618338

PATIENT
  Sex: Female

DRUGS (12)
  1. FERROUS SULFATE. [Concomitant]
     Active Substance: FERROUS SULFATE
  2. ADVAIR HFA [Concomitant]
     Active Substance: FLUTICASONE PROPIONATE\SALMETEROL XINAFOATE
  3. ISONIAZID. [Concomitant]
     Active Substance: ISONIAZID
  4. CALCITRIOL. [Concomitant]
     Active Substance: CALCITRIOL
  5. OPTIVAR [Concomitant]
     Active Substance: AZELASTINE HYDROCHLORIDE
     Route: 065
  6. PROAIR HFA [Concomitant]
     Active Substance: ALBUTEROL SULFATE
  7. CLARITIN [Concomitant]
     Active Substance: LORATADINE
  8. SINGULAIR [Concomitant]
     Active Substance: MONTELUKAST SODIUM
  9. NORVASC [Concomitant]
     Active Substance: AMLODIPINE BESYLATE
  10. SODIUM BICARB [Concomitant]
     Active Substance: SODIUM BICARBONATE
  11. ALBUTEROL. [Concomitant]
     Active Substance: ALBUTEROL
  12. TARCEVA [Suspect]
     Active Substance: ERLOTINIB HYDROCHLORIDE
     Indication: LUNG NEOPLASM MALIGNANT
     Route: 048
     Dates: start: 20150729

REACTIONS (2)
  - Diarrhoea [Unknown]
  - Oropharyngeal pain [Unknown]
